FAERS Safety Report 9705766 (Version 1)
Quarter: 2013Q4

REPORT INFORMATION
  Report Type: Spontaneous
  Country: US (occurrence: US)
  Receive Date: 20131122
  Receipt Date: 20131122
  Transmission Date: 20140711
  Serious: No
  Sender: FDA-Public Use
  Company Number: US-GILEAD-2008-0017989

PATIENT
  Sex: Female
  Weight: 68.38 kg

DRUGS (11)
  1. LETAIRIS [Suspect]
     Indication: PULMONARY ARTERIAL HYPERTENSION
     Route: 048
     Dates: start: 20080728, end: 20080902
  2. TOPROL XL [Concomitant]
     Dosage: AS DIRECTED
     Route: 048
  3. MULTIVITAMIN [Concomitant]
     Dosage: AS DIRECTED
     Route: 048
  4. SPIRIVA [Concomitant]
     Dosage: AS DIRECTED
     Route: 048
  5. VITAMIN D [Concomitant]
     Dosage: AS DIRECTED
     Route: 048
  6. CALCIUM [Concomitant]
     Dosage: AS DIRECTED
     Route: 048
  7. FOSAMAX [Concomitant]
     Dosage: AS DIRECTED
     Route: 048
  8. PAXIL [Concomitant]
     Dosage: AS DIRECTED
     Route: 048
  9. LIPITOR [Concomitant]
     Dosage: AS DIRECTED
     Route: 048
  10. METOPROLOL [Concomitant]
     Dosage: AS DIRECTED
     Route: 048
  11. LISINOPRIL [Concomitant]
     Dosage: AS DIRECTED
     Route: 048

REACTIONS (1)
  - Dyspnoea [None]
